FAERS Safety Report 16961853 (Version 2)
Quarter: 2019Q4

REPORT INFORMATION
  Report Type: Report from Study
  Country: RU (occurrence: RU)
  Receive Date: 20191025
  Receipt Date: 20191105
  Transmission Date: 20200122
  Serious: Yes (Hospitalization)
  Sender: FDA-Public Use
  Company Number: RU-ROCHE-2446499

PATIENT
  Age: 36 Year
  Sex: Female
  Weight: 66 kg

DRUGS (9)
  1. DIMENHYDRINATE. [Concomitant]
     Active Substance: DIMENHYDRINATE
     Indication: MOTION SICKNESS
     Route: 065
     Dates: start: 2012
  2. PARACETAMOL [Concomitant]
     Active Substance: ACETAMINOPHEN
     Dosage: SUBSEQUENT DOSE: 22/NOV/2012 (WEEK 2) 24/APR/2013 (WEEK 24), 07/OCT/2013 (WEEK 48), 26/MAR/2014 (WEE
     Route: 065
     Dates: start: 20121108
  3. DIPHENHYDRAMINE. [Concomitant]
     Active Substance: DIPHENHYDRAMINE
     Indication: PREMEDICATION
     Dosage: SUBSEQUENT DOSE: 22/NOV/2012 (WEEK 2) 24/APR/2013 (WEEK 24),
     Route: 065
     Dates: start: 20121108
  4. CLARITINE [Concomitant]
     Active Substance: LORATADINE
     Dosage: 21/OCT/2014 (OPEN-LABEL WEEK 2), 24/MAR/2015 (OPEN-LABEL WEEK 24), 08/SEP/2015 (OPEN-LABEL WEEK 48),
     Route: 065
     Dates: start: 20141007
  5. PLACEBO [Suspect]
     Active Substance: UNSPECIFIED INGREDIENT
     Indication: RELAPSING-REMITTING MULTIPLE SCLEROSIS
     Dosage: BASELINE (WEEK 1).?SUBSEQUENT DOSE: 22/NOV/2012), (200 ML) (WEEK 2), 24/APR/2013 (520 ML)(WEEK 24),
     Route: 042
     Dates: start: 20121108
  6. OCRELIZUMAB. [Suspect]
     Active Substance: OCRELIZUMAB
     Indication: RELAPSING-REMITTING MULTIPLE SCLEROSIS
     Dosage: OPEN-LABEL WEEK 0.?SUBSEQUENT DOSE: ON 21/OCT/2014 (OPEN-LABEL WEEK 2), 24/MAR/2015 (OPEN-LABEL WEEK
     Route: 042
     Dates: start: 20141007
  7. SUPRASTIN [Concomitant]
     Active Substance: CHLOROPYRAMINE HYDROCHLORIDE
     Dosage: 07/OCT/2014, 21/OCT/2014 (OPEN-LABEL WEEK 2), 24/MAR/2015 (OPEN-LABEL WEEK 24), 08/SEP/2015 (OPEN-LA
     Route: 065
     Dates: start: 20140326
  8. INTERFERON BETA-1A [Suspect]
     Active Substance: INTERFERON BETA-1A
     Indication: RELAPSING-REMITTING MULTIPLE SCLEROSIS
     Dosage: LAST INJECTION: 04/OCT/2014
     Route: 058
     Dates: start: 20121108
  9. METHYLPREDNISOLONE. [Concomitant]
     Active Substance: METHYLPREDNISOLONE
     Dosage: SUBSEQUENT DOSE:  22/NOV/2012 (WEEK 2) 24/APR/2013 (WEEK 24), 07/OCT/2013 (WEEK 48), 26/MAR/2014 (WE
     Route: 065
     Dates: start: 20121108

REACTIONS (1)
  - Pneumonia [Recovered/Resolved]

NARRATIVE: CASE EVENT DATE: 20190904
